FAERS Safety Report 7814635-7 (Version None)
Quarter: 2011Q4

REPORT INFORMATION
  Report Type: 
  Country: None (occurrence: None)
  Receive Date: 20111014
  Receipt Date: 20110930
  Transmission Date: 20120403
  Serious: Yes (Hospitalization)
  Sender: FDA-Public Use
  Company Number: US-BAYER-2011-028356

PATIENT
  Age: 45 Year
  Sex: Female
  Weight: 65.76 kg

DRUGS (6)
  1. YAZ [Suspect]
     Indication: MENSTRUAL CYCLE MANAGEMENT
     Dosage: UNK
     Dates: start: 20091101, end: 20100101
  2. PROMETHAZINE [Concomitant]
     Dosage: 20 MG, QD
     Route: 048
     Dates: start: 20100112
  3. TAMIFLU [Concomitant]
     Dosage: 75 MG, UNK
     Route: 048
     Dates: start: 20091117
  4. KAPIDEX [Concomitant]
     Route: 048
  5. INDOMETHACIN [Concomitant]
     Dosage: UNK
     Dates: start: 20101001
  6. CITALOPRAM [Concomitant]
     Dosage: 20 MG, QD
     Dates: start: 20100105

REACTIONS (5)
  - PULMONARY EMBOLISM [None]
  - DYSPNOEA [None]
  - CHEST PAIN [None]
  - PAIN [None]
  - INJURY [None]
